FAERS Safety Report 8512360-0 (Version None)
Quarter: 2012Q3

REPORT INFORMATION
  Report Type: 
  Country: None (occurrence: None)
  Receive Date: 20120716
  Receipt Date: 20120712
  Transmission Date: 20120928
  Serious: Yes (Other)
  Sender: FDA-Public Use
  Company Number: PHHO2012IT010364

PATIENT
  Sex: Female
  Weight: 60 kg

DRUGS (5)
  1. AFINITOR [Suspect]
     Indication: TUBEROUS SCLEROSIS
     Dosage: 5 MG, UNK
     Route: 048
     Dates: start: 20111108, end: 20111129
  2. CARBAMAZEPINE [Concomitant]
     Indication: EPILEPSY
     Dosage: 400 MG, BID
     Route: 048
  3. AFINITOR [Suspect]
     Dosage: 7.5 MG, UNK
     Route: 048
     Dates: start: 20111130, end: 20111219
  4. AFINITOR [Suspect]
     Dosage: 10 MG, UNK
     Route: 048
     Dates: start: 20111220, end: 20120711
  5. VALPROIC ACID [Concomitant]
     Indication: EPILEPSY
     Dosage: 500 MG+800 MG

REACTIONS (1)
  - OVARIAN CYST [None]
